FAERS Safety Report 24915031 (Version 1)
Quarter: 2025Q1

REPORT INFORMATION
  Report Type: Spontaneous
  Country: US (occurrence: US)
  Receive Date: 20250203
  Receipt Date: 20250203
  Transmission Date: 20250409
  Serious: No
  Sender: JOHNSON AND JOHNSON
  Company Number: US-JNJFOC-20250131674

PATIENT
  Sex: Male

DRUGS (2)
  1. TALVEY [Suspect]
     Active Substance: TALQUETAMAB-TGVS
     Indication: Product used for unknown indication
  2. HCTZ -diuretic [Concomitant]
     Indication: Diuretic therapy

REACTIONS (3)
  - Glomerular filtration rate decreased [Unknown]
  - Stomatitis [Unknown]
  - Blood potassium decreased [Unknown]
